FAERS Safety Report 6790284-7 (Version None)
Quarter: 2010Q2

REPORT INFORMATION
  Report Type: 
  Country: None (occurrence: None)
  Receive Date: 20100624
  Receipt Date: 20100616
  Transmission Date: 20101027
  Serious: Yes (Hospitalization)
  Sender: FDA-Public Use
  Company Number: FR-ASTRAZENECA-2010SE28579

PATIENT
  Age: 14723 Day
  Sex: Female

DRUGS (18)
  1. NAROPIN [Suspect]
     Route: 050
     Dates: start: 20100426, end: 20100426
  2. PROPOFOL [Suspect]
     Route: 042
     Dates: start: 20100426, end: 20100426
  3. ATRACURIUM HOSPIRA [Suspect]
     Route: 042
     Dates: start: 20100426, end: 20100426
  4. ULTIVA [Suspect]
     Route: 042
     Dates: start: 20100426, end: 20100426
  5. NORMACOL [Suspect]
     Route: 054
     Dates: start: 20100425, end: 20100425
  6. BETADINE [Suspect]
     Route: 003
     Dates: start: 20100425, end: 20100426
  7. BETADINE [Suspect]
     Route: 067
     Dates: start: 20100426, end: 20100426
  8. AUGMENTIN '125' [Suspect]
     Dosage: 3 G + 300 MG
     Route: 042
     Dates: start: 20100426, end: 20100426
  9. NEURONTIN [Suspect]
     Route: 048
     Dates: start: 20100425, end: 20100426
  10. KETAMINE HCL [Suspect]
     Route: 042
     Dates: start: 20100426, end: 20100426
  11. ACUPAN [Suspect]
     Route: 042
     Dates: start: 20100426, end: 20100427
  12. DEXAMETHASONE ACETATE [Suspect]
     Route: 042
     Dates: start: 20100426, end: 20100426
  13. SPASFON [Suspect]
     Route: 042
     Dates: start: 20100426, end: 20100428
  14. LEVOTHYROXINE SODIUM [Concomitant]
  15. OROCAL [Concomitant]
  16. IBUPROFEN TABLETS [Concomitant]
     Dosage: OCCASIONAL
  17. PERFALGAN [Concomitant]
     Dates: start: 20100426, end: 20100502
  18. DROPERIDOL [Concomitant]
     Dates: start: 20100426, end: 20100426

REACTIONS (4)
  - HAEMATURIA [None]
  - LYMPHOPENIA [None]
  - OLIGURIA [None]
  - RENAL FAILURE ACUTE [None]
